FAERS Safety Report 20690971 (Version 1)
Quarter: 2022Q2

REPORT INFORMATION
  Report Type: Report from Study
  Country: US (occurrence: US)
  Receive Date: 20220408
  Receipt Date: 20220408
  Transmission Date: 20220720
  Serious: Yes (Hospitalization)
  Sender: FDA-Public Use
  Company Number: US-JNJFOC-20220405185

PATIENT
  Age: 27 Year
  Sex: Male
  Weight: 102.15 kg

DRUGS (4)
  1. INFLIXIMAB [Suspect]
     Active Substance: INFLIXIMAB
     Indication: Inflammatory bowel disease
     Route: 042
     Dates: start: 20071119
  2. INFLIXIMAB [Suspect]
     Active Substance: INFLIXIMAB
     Route: 042
     Dates: start: 201903, end: 2022
  3. INFLECTRA [Concomitant]
     Active Substance: INFLIXIMAB-DYYB
     Route: 065
     Dates: start: 2022
  4. INFLECTRA [Concomitant]
     Active Substance: INFLIXIMAB-DYYB
     Route: 065
     Dates: start: 202202

REACTIONS (1)
  - Peritonsillitis [Recovered/Resolved]

NARRATIVE: CASE EVENT DATE: 20220309
